FAERS Safety Report 5199729-X (Version None)
Quarter: 2007Q1

REPORT INFORMATION
  Report Type: 
  Country: None (occurrence: None)
  Receive Date: 20070103
  Receipt Date: 20070103
  Transmission Date: 20070707
  Serious: No
  Sender: FDA-Public Use
  Company Number: None

PATIENT
  Age: 64 Year
  Sex: Female
  Weight: 83.0083 kg

DRUGS (2)
  1. ZOCOR [Suspect]
     Indication: BLOOD CHOLESTEROL INCREASED
     Dosage: SEE ABOVE  DAILY  PO
     Route: 048
     Dates: start: 20040304, end: 20051014
  2. VYTORIN [Suspect]
     Dosage: SEE ABOVE   PO
     Route: 048
     Dates: start: 20051014, end: 20060615

REACTIONS (5)
  - IMPAIRED DRIVING ABILITY [None]
  - LOSS OF EMPLOYMENT [None]
  - NEPHROLITHIASIS [None]
  - POLYMYOSITIS [None]
  - WALKING AID USER [None]
